FAERS Safety Report 8556626-7 (Version None)
Quarter: 2012Q3

REPORT INFORMATION
  Report Type: 
  Country: None (occurrence: None)
  Receive Date: 20120801
  Receipt Date: 20120726
  Transmission Date: 20120928
  Serious: Yes (Hospitalization)
  Sender: FDA-Public Use
  Company Number: DE-BRISTOL-MYERS SQUIBB COMPANY-16778797

PATIENT
  Age: 65 Year
  Sex: Male

DRUGS (5)
  1. METOCLOPRAMIDE [Concomitant]
  2. CITALOPRAM HYDROBROMIDE [Concomitant]
  3. RAMIPRIL [Concomitant]
  4. ACETYLSALICYLIC ACID SRT [Concomitant]
  5. IPILIMUMAB [Suspect]
     Indication: MALIGNANT MELANOMA
     Dosage: INTERRUPTED ON 28JUN12 3 MG/KG OR 10 MG/KG
     Route: 042
     Dates: start: 20120514

REACTIONS (2)
  - SUBILEUS [None]
  - COLITIS [None]
